FAERS Safety Report 24970637 (Version 1)
Quarter: 2025Q1

REPORT INFORMATION
  Report Type: Report from Study
  Country: US (occurrence: US)
  Receive Date: 20250214
  Receipt Date: 20250214
  Transmission Date: 20250408
  Serious: Yes (Hospitalization)
  Sender: ABBVIE
  Company Number: US-ABBVIE-6130169

PATIENT
  Age: 71 Year
  Sex: Male

DRUGS (1)
  1. RINVOQ [Suspect]
     Active Substance: UPADACITINIB
     Indication: Product used for unknown indication
     Route: 048

REACTIONS (7)
  - Sepsis [Recovered/Resolved]
  - Pneumonia [Recovered/Resolved]
  - Pain [Recovering/Resolving]
  - COVID-19 [Recovered/Resolved]
  - Skin irritation [Recovered/Resolved]
  - Rheumatoid arthritis [Recovering/Resolving]
  - Rhinovirus infection [Unknown]

NARRATIVE: CASE EVENT DATE: 20250101
